FAERS Safety Report 7077298-7 (Version None)
Quarter: 2010Q4

REPORT INFORMATION
  Report Type: 
  Country: None (occurrence: None)
  Receive Date: 20101101
  Receipt Date: 20101019
  Transmission Date: 20110411
  Serious: Yes (Hospitalization, Other)
  Sender: FDA-Public Use
  Company Number: US-ELI_LILLY_AND_COMPANY-US201010004963

PATIENT
  Sex: Female

DRUGS (13)
  1. FORTEO [Suspect]
     Indication: OSTEOPOROSIS
     Dosage: 20 UG, DAILY (1/D)
     Route: 065
  2. ASPIRIN [Concomitant]
     Dosage: 325 MG, DAILY (1/D)
  3. VITAMIN D3 [Concomitant]
     Dosage: 2000 IU, DAILY (1/D)
  4. LESCOL XL [Concomitant]
     Dosage: 80 MG, EACH EVENING
  5. ZETIA [Concomitant]
     Dosage: 10 MG, DAILY (1/D)
  6. NABUMETONE [Concomitant]
     Dosage: 500 MG, 2/D
  7. CETIRIZINE HCL [Concomitant]
     Dosage: 10 MG, DAILY (1/D)
  8. LEVOTHYROXINE [Concomitant]
     Dosage: 50 UG, DAILY (1/D)
  9. AMOXICILLIN AND CLAVULA. POTASSIUM /02043401/ [Concomitant]
     Dosage: 1 D/F, DAILY (1/D)
  10. BACLOFEN [Concomitant]
     Indication: MULTIPLE SCLEROSIS
     Dosage: 20 MG, 4/D
  11. PROVIGIL [Concomitant]
     Dosage: 200 MG, DAILY (1/D)
  12. VITAMIN E [Concomitant]
     Dosage: UNK, DAILY (1/D)
  13. ASCORBIC ACID [Concomitant]
     Dosage: UNK, DAILY (1/D)

REACTIONS (2)
  - CYSTITIS [None]
  - PARALYSIS [None]
